FAERS Safety Report 21225475 (Version 1)
Quarter: 2022Q3

REPORT INFORMATION
  Report Type: Spontaneous
  Country: US (occurrence: US)
  Receive Date: 20220818
  Receipt Date: 20220818
  Transmission Date: 20221026
  Serious: Yes (Hospitalization)
  Sender: FDA-Public Use
  Company Number: US-STRIDES ARCOLAB LIMITED-2022SP010356

PATIENT
  Age: 38 Year
  Sex: Female

DRUGS (7)
  1. OXYCODONE [Interacting]
     Active Substance: OXYCODONE
     Indication: Cancer pain
     Dosage: UNK
     Route: 065
  2. OXYCODONE [Interacting]
     Active Substance: OXYCODONE
     Dosage: 10 MILLIGRAM, PRN (10 MILLIGRAM,(EVERY 4 HOURS, AS NEEDED)
     Route: 048
  3. FLUCONAZOLE [Interacting]
     Active Substance: FLUCONAZOLE
     Indication: Fungal infection
     Dosage: 600 MILLIGRAM,PER DAY (DAILY FOR 3 WEEKS)
     Route: 065
  4. HYDROMORPHONE [Concomitant]
     Active Substance: HYDROMORPHONE
     Indication: Cancer pain
     Dosage: 0.2 MILLIGRAM, (10 MINUTES)
     Route: 042
  5. HYDROMORPHONE [Concomitant]
     Active Substance: HYDROMORPHONE
     Dosage: UNK UNK, PRN (AS NEEDED)
     Route: 065
  6. ACETAMINOPHEN [Concomitant]
     Active Substance: ACETAMINOPHEN
     Indication: Cancer pain
     Dosage: UNK
     Route: 065
  7. ACETAMINOPHEN [Concomitant]
     Active Substance: ACETAMINOPHEN
     Dosage: UNK (PRIOR TO DISCHARGE)
     Route: 065

REACTIONS (4)
  - Myoclonus [Unknown]
  - Somnolence [Unknown]
  - Confusional state [Unknown]
  - Drug interaction [Unknown]
